FAERS Safety Report 5199891-9 (Version None)
Quarter: 2007Q1

REPORT INFORMATION
  Report Type: 
  Country: None (occurrence: None)
  Receive Date: 20070105
  Receipt Date: 20061228
  Transmission Date: 20070707
  Serious: Yes (Other)
  Sender: FDA-Public Use
  Company Number: CH-GLAXOSMITHKLINE-B0452883A

PATIENT
  Age: 74 Year
  Sex: Male
  Weight: 69 kg

DRUGS (11)
  1. PANADOL [Suspect]
     Indication: PAIN
     Dosage: 1G TWICE PER DAY
     Route: 048
     Dates: start: 20060901, end: 20061003
  2. TOREM [Concomitant]
     Indication: HYPERTENSION
     Route: 065
  3. FELODIPINE [Concomitant]
     Indication: HYPERTENSION
     Route: 065
  4. METOPROLOL SUCCINATE [Concomitant]
     Indication: HYPERTENSION
     Route: 065
  5. DIOVAN [Concomitant]
     Indication: HYPERTENSION
     Route: 065
  6. FERRUM HAUSMANN [Concomitant]
     Route: 065
  7. SIMVASTATIN [Concomitant]
     Route: 065
  8. NOVONORM [Concomitant]
     Route: 065
  9. ZOLPIDEM TARTRATE [Concomitant]
     Route: 065
  10. NOVALGIN [Concomitant]
     Route: 065
  11. FRAGMIN [Concomitant]
     Route: 065

REACTIONS (5)
  - BLOOD CREATININE INCREASED [None]
  - BLOOD LACTIC ACID INCREASED [None]
  - METABOLIC ACIDOSIS [None]
  - PYROGLUTAMATE INCREASED [None]
  - RENAL FAILURE ACUTE [None]
